FAERS Safety Report 8258367-2 (Version None)
Quarter: 2012Q2

REPORT INFORMATION
  Report Type: 
  Country: None (occurrence: None)
  Receive Date: 20120404
  Receipt Date: 20120327
  Transmission Date: 20120825
  Serious: Yes (Hospitalization)
  Sender: FDA-Public Use
  Company Number: US-UCBSA-053377

PATIENT
  Age: 23 Year
  Sex: Female

DRUGS (6)
  1. TRAMADOL HCL [Concomitant]
     Dosage: DOSE PER INTAKE: 50 MG; 0.5-1 EVERY 6 HOURS
     Route: 048
  2. PREDNISONE TAB [Concomitant]
     Dosage: DOSE PER INTAKE :10 MG ;40MG X 7 DAYS
  3. PREDNISONE TAB [Concomitant]
     Dosage: DOSE PER INTAKE :10 MG ;20MG X 7 DAYS
  4. PREDNISONE TAB [Concomitant]
     Dosage: DOSE PER INTAKE :10 MG ;10MG X 7 DAYS
  5. CIMZIA [Suspect]
     Indication: CROHN'S DISEASE
     Dosage: INITIAL DOSING WEEK 0,2,4 THEN 400 MG EVERY 4 WEEKS
     Route: 058
     Dates: start: 20120213, end: 20120101
  6. PREDNISONE TAB [Concomitant]
     Dosage: DOSE PER INTAKE :10 MG ;30MG X 7 DAYS

REACTIONS (4)
  - DIARRHOEA HAEMORRHAGIC [None]
  - MALAISE [None]
  - DIARRHOEA [None]
  - ABDOMINAL PAIN [None]
